FAERS Safety Report 17855041 (Version 1)
Quarter: 2020Q2

REPORT INFORMATION
  Report Type: Spontaneous
  Country: US (occurrence: US)
  Receive Date: 20200602
  Receipt Date: 20200602
  Transmission Date: 20200714
  Serious: Yes (Hospitalization)
  Sender: FDA-Public Use
  Company Number: None

PATIENT
  Age: 71 Year
  Sex: Male

DRUGS (10)
  1. ATORVASTATIN [Concomitant]
     Active Substance: ATORVASTATIN
  2. COZAAR [Concomitant]
     Active Substance: LOSARTAN POTASSIUM
  3. ESCITALOPRAM [Concomitant]
     Active Substance: ESCITALOPRAM OXALATE
  4. VITAMIN B1 [Suspect]
     Active Substance: THIAMINE HYDROCHLORIDE
  5. AMLODIPINE [Concomitant]
     Active Substance: AMLODIPINE BESYLATE
  6. CARVEDILOL. [Concomitant]
     Active Substance: CARVEDILOL
  7. MULTI VITE [Concomitant]
  8. GLATIRAMER 40MG/ML SYR [Suspect]
     Active Substance: GLATIRAMER
     Indication: MULTIPLE SCLEROSIS
     Dosage: ROUTE: AT LEAST 48 HR APPART
     Route: 058
     Dates: start: 20190707
  9. LASIX [Concomitant]
     Active Substance: FUROSEMIDE
  10. VITAMIN D [Concomitant]
     Active Substance: VITAMIN D NOS

REACTIONS (1)
  - Pneumothorax [None]

NARRATIVE: CASE EVENT DATE: 20200508
